FAERS Safety Report 18515156 (Version 1)
Quarter: 2020Q4

REPORT INFORMATION
  Report Type: Spontaneous
  Country: DE (occurrence: DE)
  Receive Date: 20201118
  Receipt Date: 20201118
  Transmission Date: 20210114
  Serious: Yes (Hospitalization)
  Sender: FDA-Public Use
  Company Number: DE-TEVA-2020-DE-1848576

PATIENT
  Age: 41 Year
  Sex: Female
  Weight: 84 kg

DRUGS (5)
  1. PIPERAZINE [Suspect]
     Active Substance: PIPERAZINE
     Dosage: NK MG, DISCONTINUED
     Route: 065
  2. ZOPICLONE [Concomitant]
     Active Substance: ZOPICLONE
     Dosage: 7.5 MILLIGRAM DAILY;   0-0-0-1
  3. ALPRAZOLAM. [Concomitant]
     Active Substance: ALPRAZOLAM
     Dosage: 0.5 MG, IF NECESSARY
  4. CANDESARTAN. [Concomitant]
     Active Substance: CANDESARTAN
     Dosage: 1 DOSAGE FORMS DAILY; 8 MG, 0.5-0-0.5-0
  5. VALPROINSAEURE [Suspect]
     Active Substance: VALPROIC ACID
     Dosage: 300 MG, 1-0-0.5-0

REACTIONS (4)
  - Disorientation [Unknown]
  - Panic reaction [Unknown]
  - Insomnia [Unknown]
  - Nervousness [Unknown]
